FAERS Safety Report 8677264 (Version 2)
Quarter: 2012Q4

REPORT INFORMATION
  Report Type: Report from Study
  Country: JP (occurrence: JP)
  Receive Date: 20120723
  Receipt Date: 20121015
  Transmission Date: 20130627
  Serious: Yes (Other)
  Sender: FDA-Public Use
  Company Number: JP-ASTELLAS-2012JP006606

PATIENT
  Age: 76 Year
  Sex: Male

DRUGS (24)
  1. TACROLIMUS CAPSULES [Suspect]
     Indication: MYASTHENIA GRAVIS
     Dosage: 2 mg, Unknown/D
     Route: 048
     Dates: start: 20110316, end: 20110913
  2. TACROLIMUS CAPSULES [Suspect]
     Dosage: 3 mg, Unknown/D
     Route: 048
     Dates: start: 20110216, end: 20110316
  3. TACROLIMUS CAPSULES [Suspect]
     Dosage: 1 mg, Unknown/D
     Route: 048
     Dates: start: 20110914, end: 20111227
  4. TACROLIMUS CAPSULES [Suspect]
     Dosage: 2 mg, Unknown/D
     Route: 048
     Dates: start: 20111228
  5. PREDNISOLONE [Suspect]
     Indication: MYASTHENIA GRAVIS
     Dosage: 30 mg, Unknown/D
     Route: 048
     Dates: end: 20110722
  6. PREDNISOLONE [Suspect]
     Dosage: 25 mg, Unknown/D
     Route: 048
     Dates: start: 20110723, end: 20110817
  7. PREDNISOLONE [Suspect]
     Dosage: 20 mg, Unknown/D
     Route: 048
     Dates: start: 20110818, end: 20110928
  8. PREDNISOLONE [Suspect]
     Dosage: 15 mg, Unknown/D
     Route: 048
     Dates: start: 20110929, end: 20111102
  9. PREDNISOLONE [Suspect]
     Dosage: 10 mg, Unknown/D
     Route: 048
     Dates: start: 20111103, end: 20111130
  10. PREDNISOLONE [Suspect]
     Dosage: 7.5 mg, Unknown/D
     Route: 048
     Dates: start: 20111201, end: 20120125
  11. PREDNISOLONE [Suspect]
     Dosage: 5 mg, Unknown/D
     Route: 048
     Dates: start: 20120126
  12. MESTINON [Concomitant]
     Indication: MYASTHENIA GRAVIS
     Dosage: 180 mg, Unknown/D
     Route: 048
     Dates: end: 20110705
  13. GASTER [Concomitant]
     Indication: PROPHYLAXIS
     Dosage: 20 mg, Unknown/D
     Route: 048
  14. ALFAROL [Concomitant]
     Indication: PROPHYLAXIS
     Dosage: 1 ug, Unknown/D
     Route: 048
  15. ACTONEL [Concomitant]
     Indication: PROPHYLAXIS
     Dosage: 17.5 mg, Unknown/D
     Route: 048
  16. CRESTOR [Concomitant]
     Indication: HYPERLIPIDAEMIA
     Dosage: 2.5 mg, Unknown/D
     Route: 048
  17. BAKTAR [Concomitant]
     Indication: PROPHYLAXIS
     Dosage: 3 DF, Weekly
     Route: 048
  18. MEDET [Concomitant]
     Dosage: 750 mg, Unknown/D
     Route: 048
     Dates: start: 20110527, end: 20110824
  19. METGLUCO [Concomitant]
     Dosage: 750 mg, Unknown/D
     Route: 048
     Dates: start: 20110825, end: 20111111
  20. METGLUCO [Concomitant]
     Dosage: 500 mg, Unknown/D
     Route: 048
     Dates: start: 20111112
  21. NIZORAL [Concomitant]
     Indication: TINEA MANUUM
     Route: 061
  22. NIZORAL [Concomitant]
     Indication: TINEA MANUUM
     Dosage: UNK
     Route: 061
  23. ASMANEX [Concomitant]
     Indication: ASTHMA
     Dosage: 40 ug, Unknown/D
     Route: 055
     Dates: start: 20120202
  24. BEROTEC [Concomitant]
     Indication: ASTHMA
     Dosage: UNK
     Route: 055
     Dates: start: 20120202

REACTIONS (5)
  - Renal impairment [Recovered/Resolved]
  - Tinea manuum [Recovering/Resolving]
  - Beta 2 microglobulin urine increased [Recovered/Resolved]
  - Asthma [Unknown]
  - Constipation [Unknown]
